FAERS Safety Report 19613665 (Version 1)
Quarter: 2021Q3

REPORT INFORMATION
  Report Type: Spontaneous
  Country: US (occurrence: US)
  Receive Date: 20210727
  Receipt Date: 20210727
  Transmission Date: 20211014
  Serious: Yes (Hospitalization, Disabling)
  Sender: FDA-Public Use
  Company Number: None

PATIENT
  Age: 47 Year
  Sex: Male
  Weight: 103.5 kg

DRUGS (6)
  1. PROBIOTIC [Concomitant]
     Active Substance: PROBIOTICS NOS
  2. LEVAQUIN [Suspect]
     Active Substance: LEVOFLOXACIN
     Indication: DIVERTICULITIS
     Dates: start: 20201231, end: 20210105
  3. ALLEGRA [Concomitant]
     Active Substance: FEXOFENADINE HYDROCHLORIDE
  4. LOSARTAN. [Concomitant]
     Active Substance: LOSARTAN
  5. OMEPREZOLE [Concomitant]
     Active Substance: OMEPRAZOLE
  6. CIPROFLOXACIN. [Suspect]
     Active Substance: CIPROFLOXACIN
     Indication: DIVERTICULITIS
     Dosage: ?          QUANTITY:1 TABLET(S);?
     Route: 048
     Dates: start: 20140710, end: 20210105

REACTIONS (11)
  - Panic attack [None]
  - Paraesthesia [None]
  - Myocardial infarction [None]
  - Neuropathy peripheral [None]
  - Diverticulitis [None]
  - Vertigo [None]
  - Nightmare [None]
  - Root canal infection [None]
  - Nystagmus [None]
  - Toxicity to various agents [None]
  - Anxiety [None]

NARRATIVE: CASE EVENT DATE: 20200704
